FAERS Safety Report 6881487-1 (Version None)
Quarter: 2010Q3

REPORT INFORMATION
  Report Type: 
  Country: None (occurrence: None)
  Receive Date: 20100729
  Receipt Date: 20100720
  Transmission Date: 20110219
  Serious: Yes (Death, Hospitalization)
  Sender: FDA-Public Use
  Company Number: US-BIOGENIDEC-2010BI015669

PATIENT
  Age: 43 Year
  Sex: Male

DRUGS (2)
  1. TYSABRI [Suspect]
     Indication: MULTIPLE SCLEROSIS
     Route: 042
     Dates: start: 20061023, end: 20100310
  2. AVONEX [Concomitant]
     Indication: MULTIPLE SCLEROSIS

REACTIONS (3)
  - DEATH [None]
  - FALL [None]
  - MULTIPLE SCLEROSIS RELAPSE [None]
